FAERS Safety Report 23787752 (Version 2)
Quarter: 2024Q3

REPORT INFORMATION
  Report Type: Spontaneous
  Country: DE (occurrence: DE)
  Receive Date: 20240426
  Receipt Date: 20240703
  Transmission Date: 20241017
  Serious: Yes (Life-Threatening, Other)
  Sender: SANOFI AVENTIS
  Company Number: DE-DCGMA-24203204

PATIENT
  Age: 56 Year
  Sex: Male
  Weight: 105 kg

DRUGS (5)
  1. ENOXAPARIN SODIUM [Suspect]
     Active Substance: ENOXAPARIN SODIUM
     Indication: Thrombosis prophylaxis
     Dosage: 40 MG, QD
     Route: 058
  2. NALOXONE HYDROCHLORIDE\OXYCODONE HYDROCHLORIDE [Concomitant]
     Active Substance: NALOXONE HYDROCHLORIDE\OXYCODONE HYDROCHLORIDE
     Indication: Analgesic therapy
     Dosage: UNK; 10/5 MG
     Route: 048
  3. BISOPROLOL [Concomitant]
     Active Substance: BISOPROLOL\BISOPROLOL FUMARATE
     Indication: Hypertension
     Dosage: 2.5 MG
     Route: 048
  4. PANTOPRAZOLE [Concomitant]
     Active Substance: PANTOPRAZOLE
     Dosage: 40 MG
     Route: 048
  5. METAMIZOLE [Concomitant]
     Active Substance: METAMIZOLE
     Indication: Analgesic therapy
     Dosage: 3000 MG, QD; (1000 MG 3X/DAY)
     Route: 048

REACTIONS (2)
  - Pulmonary embolism [Not Recovered/Not Resolved]
  - Suspected product quality issue [Unknown]

NARRATIVE: CASE EVENT DATE: 20240411
